FAERS Safety Report 4798095-9 (Version None)
Quarter: 2005Q4

REPORT INFORMATION
  Report Type: 
  Country: None (occurrence: None)
  Receive Date: 20051006
  Receipt Date: 20051006
  Transmission Date: 20060501
  Serious: Yes (Hospitalization)
  Sender: FDA-Public Use
  Company Number: None

PATIENT
  Sex: Female

DRUGS (2)
  1. HUMULIN 70/30 [Suspect]
     Indication: DIABETES MELLITUS
     Dosage: 30 UNITS QAM   40 UNITS QPM   SEVERAL YEARS
  2. CELEXA [Concomitant]

REACTIONS (9)
  - ANOREXIA [None]
  - BLOOD BICARBONATE DECREASED [None]
  - BLOOD GLUCOSE INCREASED [None]
  - DIZZINESS [None]
  - FATIGUE [None]
  - GLYCOSYLATED HAEMOGLOBIN INCREASED [None]
  - KETOACIDOSIS [None]
  - PCO2 DECREASED [None]
  - PO2 INCREASED [None]
